FAERS Safety Report 7784392-1 (Version None)
Quarter: 2011Q3

REPORT INFORMATION
  Report Type: 
  Country: None (occurrence: None)
  Receive Date: 20110928
  Receipt Date: 20110921
  Transmission Date: 20111222
  Serious: Yes (Hospitalization)
  Sender: FDA-Public Use
  Company Number: US-MILLENNIUM PHARMACEUTICALS, INC.-2011-04477

PATIENT
  Sex: Female

DRUGS (3)
  1. DECADRON [Concomitant]
     Indication: MULTIPLE MYELOMA
     Dosage: 20 MG, CYCLIC
     Dates: start: 20110613
  2. REVLIMID [Suspect]
     Indication: MULTIPLE MYELOMA
     Dosage: 10 MG, CYCLIC
     Route: 048
     Dates: start: 20110613
  3. VELCADE [Suspect]
     Indication: MULTIPLE MYELOMA
     Dosage: 1.0 MG/M2, CYCLIC
     Dates: start: 20110613

REACTIONS (2)
  - SPINAL COMPRESSION FRACTURE [None]
  - PANCREATITIS [None]
